FAERS Safety Report 6998630-6 (Version None)
Quarter: 2010Q3

REPORT INFORMATION
  Report Type: 
  Country: None (occurrence: None)
  Receive Date: 20100920
  Receipt Date: 20070613
  Transmission Date: 20110219
  Serious: Yes (Other)
  Sender: FDA-Public Use
  Company Number: US-ASTRAZENECA-2006UW11859

PATIENT
  Age: 69 Year
  Sex: Male
  Weight: 84.4 kg

DRUGS (21)
  1. SEROQUEL [Suspect]
     Indication: BIPOLAR DISORDER
     Route: 048
     Dates: start: 20020101, end: 20050101
  2. SEROQUEL [Suspect]
     Indication: SCHIZOPHRENIA
     Route: 048
     Dates: start: 20020101, end: 20050101
  3. SEROQUEL [Suspect]
     Indication: ANXIETY
     Route: 048
     Dates: start: 20020101, end: 20050101
  4. SEROQUEL [Suspect]
     Indication: AGITATION
     Route: 048
     Dates: start: 20020101, end: 20050101
  5. SEROQUEL [Suspect]
     Dosage: 25-650 MG
     Route: 048
     Dates: start: 20040602
  6. SEROQUEL [Suspect]
     Dosage: 25-650 MG
     Route: 048
     Dates: start: 20040602
  7. SEROQUEL [Suspect]
     Dosage: 25-650 MG
     Route: 048
     Dates: start: 20040602
  8. SEROQUEL [Suspect]
     Dosage: 25-650 MG
     Route: 048
     Dates: start: 20040602
  9. HALDOL [Concomitant]
     Dates: start: 20050101
  10. RISPERDAL [Concomitant]
     Dates: start: 20050101
  11. THORAZINE [Concomitant]
     Dates: start: 20020101
  12. ZYPREXA/SYMBYAX [Concomitant]
     Dates: start: 20020101
  13. TRAZODONE HCL [Concomitant]
     Dosage: 100-300 MG
     Route: 048
     Dates: start: 20020412
  14. DEPAKOTE [Concomitant]
     Dosage: 1000-1500 MG
     Route: 048
     Dates: start: 20020412
  15. ZOCOR [Concomitant]
     Route: 048
     Dates: start: 20020412
  16. CELEBREX [Concomitant]
     Route: 048
     Dates: start: 20020412
  17. CLONAZEPAM [Concomitant]
     Dates: start: 20020705
  18. VIOXX [Concomitant]
     Dates: start: 20020717
  19. ALLOPURINOL [Concomitant]
     Route: 048
     Dates: start: 20020731
  20. HYDROCHLOROTHIAZIDE [Concomitant]
     Dates: start: 20030725
  21. NORVASC [Concomitant]
     Dates: start: 20030725

REACTIONS (7)
  - BLOOD CHOLESTEROL INCREASED [None]
  - DIABETIC KETOACIDOSIS [None]
  - ESSENTIAL HYPERTENSION [None]
  - HYPERLIPIDAEMIA [None]
  - HYPERTENSION [None]
  - TYPE 1 DIABETES MELLITUS [None]
  - TYPE 2 DIABETES MELLITUS [None]
